FAERS Safety Report 6934669-4 (Version None)
Quarter: 2010Q3

REPORT INFORMATION
  Report Type: 
  Country: None (occurrence: None)
  Receive Date: 20100820
  Receipt Date: 20100813
  Transmission Date: 20110219
  Serious: Yes (Other)
  Sender: FDA-Public Use
  Company Number: DE-ABBOTT-10P-062-0663646-00

PATIENT
  Age: 37 Year
  Sex: Female

DRUGS (7)
  1. HUMIRA [Suspect]
     Indication: CROHN'S DISEASE
     Dates: start: 20100628
  2. NORETHISTERONE [Suspect]
     Indication: MENSTRUAL DISORDER
     Route: 048
     Dates: start: 20100628
  3. AMITRIPTYLINE HCL [Concomitant]
     Indication: SEDATIVE THERAPY
  4. CYCLIZINE [Concomitant]
     Indication: ANTIEMETIC SUPPORTIVE CARE
     Route: 048
  5. ONDANSETRON [Concomitant]
     Indication: ANTIEMETIC SUPPORTIVE CARE
     Route: 048
  6. TEMAZEPAM [Concomitant]
     Indication: SEDATIVE THERAPY
     Route: 048
  7. CHLORPHENAMINE [Concomitant]
     Indication: ANTIALLERGIC THERAPY

REACTIONS (2)
  - JOINT SWELLING [None]
  - RASH PRURITIC [None]
